FAERS Safety Report 16467279 (Version 1)
Quarter: 2019Q2

REPORT INFORMATION
  Report Type: Spontaneous
  Country: CA (occurrence: CA)
  Receive Date: 20190624
  Receipt Date: 20190624
  Transmission Date: 20190711
  Serious: Yes (Other)
  Sender: FDA-Public Use
  Company Number: CA-TEVA-2019-CA-1067064

PATIENT
  Age: 66 Year
  Sex: Male
  Weight: 101 kg

DRUGS (13)
  1. QUETIAPINE. [Suspect]
     Active Substance: QUETIAPINE
     Indication: MUSCLE SPASMS
  2. CELECOXIB. [Concomitant]
     Active Substance: CELECOXIB
  3. QUETIAPINE. [Suspect]
     Active Substance: QUETIAPINE
     Indication: PAIN
     Dosage: 50 MILLIGRAM DAILY;
     Route: 048
  4. QUETIAPINE. [Suspect]
     Active Substance: QUETIAPINE
     Indication: INSOMNIA
  5. TOVIAZ [Concomitant]
     Active Substance: FESOTERODINE FUMARATE
  6. TAMSULOSIN [Concomitant]
     Active Substance: TAMSULOSIN
  7. DOMPERIDONE MALEATE TABLETS [Concomitant]
     Active Substance: DOMPERIDONE MALEATE
  8. MORPHINE [Concomitant]
     Active Substance: MORPHINE
  9. PREGABALIN. [Concomitant]
     Active Substance: PREGABALIN
  10. ROSUVASTATIN. [Concomitant]
     Active Substance: ROSUVASTATIN
  11. TRAZODONE [Concomitant]
     Active Substance: TRAZODONE HYDROCHLORIDE
  12. AMITRIPTYLINE [Concomitant]
     Active Substance: AMITRIPTYLINE
  13. ESCITALOPRAM [Concomitant]
     Active Substance: ESCITALOPRAM OXALATE

REACTIONS (3)
  - Dyspnoea [Recovered/Resolved]
  - Dyspnoea exertional [Recovered/Resolved]
  - Fatigue [Recovered/Resolved]
